FAERS Safety Report 25364597 (Version 2)
Quarter: 2025Q2

REPORT INFORMATION
  Report Type: Spontaneous
  Country: KR (occurrence: KR)
  Receive Date: 20250527
  Receipt Date: 20250528
  Transmission Date: 20250716
  Serious: No
  Sender: TAKEDA
  Company Number: KR-TAKEDA-2025TUS049465

PATIENT
  Age: 44 Year
  Sex: Male

DRUGS (4)
  1. LIVTENCITY [Suspect]
     Active Substance: MARIBAVIR
     Indication: Product used for unknown indication
  2. PREDNISONE [Concomitant]
     Active Substance: PREDNISONE
     Indication: Chronic graft versus host disease in eye
     Dosage: 20 MILLIGRAM, QD
  3. PREDNISONE [Concomitant]
     Active Substance: PREDNISONE
     Indication: Chronic graft versus host disease in skin
  4. PREDNISONE [Concomitant]
     Active Substance: PREDNISONE
     Indication: Chronic graft versus host disease oral

REACTIONS (2)
  - Neutrophil count decreased [Unknown]
  - Platelet count decreased [Unknown]
